FAERS Safety Report 25958968 (Version 1)
Quarter: 2025Q4

REPORT INFORMATION
  Report Type: Spontaneous
  Country: CA (occurrence: CA)
  Receive Date: 20251025
  Receipt Date: 20251025
  Transmission Date: 20260118
  Serious: Yes (Other)
  Sender: CELLTRION
  Company Number: CA-PFIZER INC-202400063564

PATIENT

DRUGS (23)
  1. INFLIXIMAB [Suspect]
     Active Substance: INFLIXIMAB
     Indication: Crohn^s disease
     Dosage: 450 MG
     Route: 042
  2. INFLIXIMAB [Suspect]
     Active Substance: INFLIXIMAB
     Dosage: 5 MG/KG
     Route: 042
  3. INFLIXIMAB [Suspect]
     Active Substance: INFLIXIMAB
     Dosage: 455 MG
     Route: 042
  4. INFLIXIMAB [Suspect]
     Active Substance: INFLIXIMAB
     Dosage: 445 MG
     Route: 042
  5. INFLIXIMAB [Suspect]
     Active Substance: INFLIXIMAB
     Dosage: 435 MG
     Route: 042
  6. INFLIXIMAB [Suspect]
     Active Substance: INFLIXIMAB
     Dosage: 450 MG
     Route: 042
  7. INFLIXIMAB [Suspect]
     Active Substance: INFLIXIMAB
     Dosage: 445 MG
     Route: 042
  8. INFLIXIMAB [Suspect]
     Active Substance: INFLIXIMAB
     Dosage: 5 MG/KG
     Route: 042
  9. INFLIXIMAB [Suspect]
     Active Substance: INFLIXIMAB
     Dosage: 445 MG
     Route: 042
  10. INFLIXIMAB [Suspect]
     Active Substance: INFLIXIMAB
     Dosage: 5 MG/KG
     Route: 042
  11. INFLIXIMAB [Suspect]
     Active Substance: INFLIXIMAB
     Dosage: 450 MG
     Route: 042
  12. INFLECTRA [Suspect]
     Active Substance: INFLIXIMAB-DYYB
     Indication: Crohn^s disease
     Dosage: 5 MG/KG, INDUCTION WEEKS 0, 2, 6 MAINTENANCE EVERY 8 WEEKS
     Route: 042
     Dates: start: 20240212
  13. INFLECTRA [Suspect]
     Active Substance: INFLIXIMAB-DYYB
     Dosage: 450 MG (5 MG/KG), 4 WEEKS (WEEK 2 OF INDUCTION)
     Route: 042
     Dates: start: 20240312
  14. INFLECTRA [Suspect]
     Active Substance: INFLIXIMAB-DYYB
     Dosage: 5 MG/KG, INDUCTION WEEKS 0, 2, 6 MAINTENANCE EVERY 8 WEEKS
     Route: 042
     Dates: start: 20240410
  15. INFLECTRA [Suspect]
     Active Substance: INFLIXIMAB-DYYB
     Dosage: 455 MG, INDUCTION WEEKS 0, 2, 6 MAINTENANCE EVERY 8 WEEKS
     Route: 042
     Dates: start: 20240605
  16. INFLECTRA [Suspect]
     Active Substance: INFLIXIMAB-DYYB
     Dosage: 445 MG, AFTER 9 WEEKS AND 5 DAYS (PRESCRIBED EVERY 6 WEEKS)
     Route: 042
     Dates: start: 20240812
  17. INFLECTRA [Suspect]
     Active Substance: INFLIXIMAB-DYYB
     Dosage: 450 MG (5 MG/KG), EVERY 6 WEEKS
     Route: 042
     Dates: start: 20240924
  18. INFLECTRA [Suspect]
     Active Substance: INFLIXIMAB-DYYB
     Dosage: 435 MG (5 MG/KG), EVERY 6 WEEKS
     Route: 042
     Dates: start: 20241106
  19. INFLECTRA [Suspect]
     Active Substance: INFLIXIMAB-DYYB
     Dosage: 450 MG, AFTER 6 WEEKS AND 1 DAY (5 MG/KG, EVERY 6 WEEKS)
     Route: 042
     Dates: start: 20241219
  20. INFLECTRA [Suspect]
     Active Substance: INFLIXIMAB-DYYB
     Dosage: 445 MG, AFTER 7 WEEKS (5 MG/KG, EVERY 6 WEEKS)
     Route: 042
     Dates: start: 20250206
  21. INFLECTRA [Suspect]
     Active Substance: INFLIXIMAB-DYYB
     Dosage: 5 MG/KG, EVERY 6 WEEKS
     Route: 042
     Dates: start: 20250320
  22. INFLECTRA [Suspect]
     Active Substance: INFLIXIMAB-DYYB
     Dosage: 445 MG, 5 WEEKS (5 MG/KG, EVERY 4 WEEKS)
     Route: 042
     Dates: start: 20250424
  23. DEXILANT [Concomitant]
     Active Substance: DEXLANSOPRAZOLE
     Dosage: 1 DF

REACTIONS (10)
  - Condition aggravated [Not Recovered/Not Resolved]
  - Head injury [Not Recovered/Not Resolved]
  - Ingrowing nail [Not Recovered/Not Resolved]
  - Arthralgia [Not Recovered/Not Resolved]
  - Alopecia [Not Recovered/Not Resolved]
  - Therapeutic response shortened [Not Recovered/Not Resolved]
  - Off label use [Not Recovered/Not Resolved]
  - Inappropriate schedule of product administration [Not Recovered/Not Resolved]
  - Underdose [Unknown]
  - Overdose [Unknown]

NARRATIVE: CASE EVENT DATE: 20240101
